FAERS Safety Report 17117741 (Version 2)
Quarter: 2020Q1

REPORT INFORMATION
  Report Type: Spontaneous
  Country: CN (occurrence: CN)
  Receive Date: 20191205
  Receipt Date: 20200303
  Transmission Date: 20200409
  Serious: Yes (Other)
  Sender: FDA-Public Use
  Company Number: CN-JNJFOC-20191143371

PATIENT
  Sex: Female
  Weight: 60 kg

DRUGS (2)
  1. TOPAMAX [Suspect]
     Active Substance: TOPIRAMATE
     Indication: EPILEPSY
     Dosage: 2 TABLETS PER TIME IN THE MORNING AND 3 TABLETS PER TIME IN THE AFTERNOON
     Route: 048
  2. PHENOBARBITAL. [Concomitant]
     Active Substance: PHENOBARBITAL
     Indication: EPILEPSY

REACTIONS (3)
  - Decreased immune responsiveness [Unknown]
  - Pyrexia [Unknown]
  - Epilepsy [Unknown]

NARRATIVE: CASE EVENT DATE: 2013
